FAERS Safety Report 17924362 (Version 2)
Quarter: 2020Q2

REPORT INFORMATION
  Report Type: Report from Study
  Country: BR (occurrence: BR)
  Receive Date: 20200622
  Receipt Date: 20200629
  Transmission Date: 20200714
  Serious: Yes (Other)
  Sender: FDA-Public Use
  Company Number: PHHY2018BR033575

PATIENT
  Age: 53 Year
  Sex: Male
  Weight: 98 kg

DRUGS (9)
  1. COSENTYX [Suspect]
     Active Substance: SECUKINUMAB
     Dosage: 150 MG, QMO (2 AMPOULES) (EVERY 4 WEEKS)
     Route: 058
     Dates: end: 201910
  2. COSENTYX [Suspect]
     Active Substance: SECUKINUMAB
     Indication: PSORIASIS
     Dosage: 150 MG, (2 APPLICATIONS PER MONTH)
     Route: 058
     Dates: start: 201703
  3. GLYCERIN. [Suspect]
     Active Substance: GLYCERIN
     Indication: PSORIASIS
     Dosage: UNK
     Route: 061
  4. COSENTYX [Suspect]
     Active Substance: SECUKINUMAB
     Dosage: UNK
     Route: 065
     Dates: start: 20171213, end: 201712
  5. ISONIAZID. [Concomitant]
     Active Substance: ISONIAZID
     Indication: PROPHYLAXIS
     Dosage: UNK
     Route: 065
     Dates: start: 202004
  6. COSENTYX [Suspect]
     Active Substance: SECUKINUMAB
     Dosage: UNK
     Route: 065
     Dates: start: 20170703
  7. COSENTYX [Suspect]
     Active Substance: SECUKINUMAB
     Dosage: 300 MG, QMO
     Route: 058
     Dates: start: 20170403
  8. COSENTYX [Suspect]
     Active Substance: SECUKINUMAB
     Dosage: UNK
     Route: 065
     Dates: start: 201801
  9. COSENTYX [Suspect]
     Active Substance: SECUKINUMAB
     Dosage: UNK
     Route: 065
     Dates: start: 201905

REACTIONS (16)
  - Transaminases abnormal [Unknown]
  - Very low density lipoprotein increased [Unknown]
  - Blood triglycerides abnormal [Unknown]
  - Gait disturbance [Unknown]
  - Hepatitis C antibody positive [Unknown]
  - Skin lesion [Not Recovered/Not Resolved]
  - Paraesthesia [Not Recovered/Not Resolved]
  - Alanine aminotransferase abnormal [Unknown]
  - Drug ineffective [Unknown]
  - Weight decreased [Unknown]
  - Hepatitis C [Recovering/Resolving]
  - Blood cholesterol increased [Unknown]
  - Non-high-density lipoprotein cholesterol increased [Unknown]
  - Skin discolouration [Unknown]
  - Hypoaesthesia [Not Recovered/Not Resolved]
  - Psoriasis [Unknown]

NARRATIVE: CASE EVENT DATE: 20191020
